FAERS Safety Report 23581983 (Version 1)
Quarter: 2024Q1

REPORT INFORMATION
  Report Type: Spontaneous
  Country: US (occurrence: US)
  Receive Date: 20240229
  Receipt Date: 20240229
  Transmission Date: 20240410
  Serious: Yes (Hospitalization, Other)
  Sender: FDA-Public Use
  Company Number: US-GILEAD-2024-0663798

PATIENT
  Age: 62 Year
  Sex: Female

DRUGS (1)
  1. YESCARTA [Suspect]
     Active Substance: AXICABTAGENE CILOLEUCEL
     Indication: Diffuse large B-cell lymphoma
     Dosage: UNK
     Route: 065
     Dates: start: 20231214, end: 20231214

REACTIONS (11)
  - Staphylococcal infection [Unknown]
  - Cytomegalovirus viraemia [Unknown]
  - Respiratory syncytial virus infection [Unknown]
  - Coronavirus infection [Unknown]
  - Subdural haemorrhage [Unknown]
  - Blood blister [Recovering/Resolving]
  - Muscle necrosis [Unknown]
  - Haematoma muscle [Unknown]
  - Pulmonary embolism [Unknown]
  - Immune effector cell-associated neurotoxicity syndrome [Unknown]
  - Cytokine release syndrome [Unknown]

NARRATIVE: CASE EVENT DATE: 20231201
